FAERS Safety Report 7621374-4 (Version None)
Quarter: 2011Q3

REPORT INFORMATION
  Report Type: 
  Country: None (occurrence: None)
  Receive Date: 20110719
  Receipt Date: 20110711
  Transmission Date: 20111222
  Serious: Yes (Hospitalization)
  Sender: FDA-Public Use
  Company Number: US-BAYER-201039882NA

PATIENT
  Age: 51 Year
  Sex: Female
  Weight: 56.236 kg

DRUGS (10)
  1. YAZ [Suspect]
     Indication: ACNE
     Dosage: UNK UNK, QD
     Route: 048
     Dates: end: 20090506
  2. TOPAMAX [Concomitant]
  3. YASMIN [Suspect]
     Indication: MENSTRUAL CYCLE MANAGEMENT
  4. BORIVAN [Concomitant]
  5. LAMISIL [Concomitant]
  6. ATENOLOL [Concomitant]
  7. YASMIN [Suspect]
     Indication: ACNE
     Dosage: UNK UNK, QD
     Route: 048
     Dates: end: 20090506
  8. YAZ [Suspect]
     Indication: MENSTRUAL CYCLE MANAGEMENT
  9. COPAXONE [Concomitant]
  10. PROZAC [Concomitant]

REACTIONS (3)
  - PULMONARY EMBOLISM [None]
  - ANXIETY [None]
  - PAIN [None]
